FAERS Safety Report 6245164-2 (Version None)
Quarter: 2009Q2

REPORT INFORMATION
  Report Type: 
  Country: None (occurrence: None)
  Receive Date: 20090619
  Receipt Date: 20090325
  Transmission Date: 20091009
  Serious: No
  Sender: FDA-Public Use
  Company Number: ALL1-2009-00798

PATIENT
  Age: 12 Year
  Sex: Female
  Weight: 54.4 kg

DRUGS (1)
  1. VYVANSE [Suspect]
     Indication: ATTENTION DEFICIT/HYPERACTIVITY DISORDER
     Dosage: MG, 1X/DAY, QD, ORAL
     Route: 048
     Dates: start: 20090201

REACTIONS (3)
  - MENSTRUATION IRREGULAR [None]
  - MUSCLE STRAIN [None]
  - PAIN [None]
